FAERS Safety Report 13415261 (Version 1)
Quarter: 2017Q2

REPORT INFORMATION
  Report Type: Spontaneous
  Country: SE (occurrence: SE)
  Receive Date: 20170407
  Receipt Date: 20170407
  Transmission Date: 20170830
  Serious: Yes (Other)
  Sender: FDA-Public Use
  Company Number: SE-009507513-1704SWE002174

PATIENT
  Age: 73 Year
  Sex: Female

DRUGS (12)
  1. FLUCONAZOLE. [Suspect]
     Active Substance: FLUCONAZOLE
  2. DICLOFENAC [Suspect]
     Active Substance: DICLOFENAC
  3. LOSARTAN POTASSIUM. [Suspect]
     Active Substance: LOSARTAN POTASSIUM
  4. TELMISARTAN. [Suspect]
     Active Substance: TELMISARTAN
  5. VOLTAREN [Suspect]
     Active Substance: DICLOFENAC SODIUM
  6. ENALAPRIL MALEATE. [Suspect]
     Active Substance: ENALAPRIL MALEATE
  7. IPREN [Suspect]
     Active Substance: IBUPROFEN
  8. PAPAVERINE HYDROCHLORIDE. [Suspect]
     Active Substance: PAPAVERINE HYDROCHLORIDE
  9. NORMORIX MITE [Suspect]
     Active Substance: AMILORIDE HYDROCHLORIDE\HYDROCHLOROTHIAZIDE
  10. CANDESARTAN. [Suspect]
     Active Substance: CANDESARTAN
  11. SPIRONOLACTONE. [Suspect]
     Active Substance: SPIRONOLACTONE
     Dosage: UNK
  12. NAPROXEN. [Suspect]
     Active Substance: NAPROXEN

REACTIONS (5)
  - Feeling abnormal [Not Recovered/Not Resolved]
  - Headache [Not Recovered/Not Resolved]
  - Nausea [Not Recovered/Not Resolved]
  - Influenza like illness [Not Recovered/Not Resolved]
  - Arthralgia [Not Recovered/Not Resolved]
